FAERS Safety Report 4743780-8 (Version None)
Quarter: 2005Q3

REPORT INFORMATION
  Report Type: 
  Country: None (occurrence: None)
  Receive Date: 20050809
  Receipt Date: 20041012
  Transmission Date: 20060218
  Serious: Yes (Hospitalization)
  Sender: FDA-Public Use
  Company Number: 2005BI006056

PATIENT
  Age: 42 Year
  Sex: Female
  Weight: 72 kg

DRUGS (4)
  1. AVONEX [Suspect]
     Indication: MULTIPLE SCLEROSIS
     Dosage: 30 UG;QW;IM
     Route: 030
     Dates: start: 19991101, end: 20031001
  2. AVONEX [Suspect]
     Indication: MULTIPLE SCLEROSIS
     Dosage: 20 UG;QW;IM
     Route: 030
     Dates: start: 20031001
  3. CARBAMAZEPINE [Concomitant]
  4. NOVALGIN [Concomitant]

REACTIONS (4)
  - CONDITION AGGRAVATED [None]
  - MASTOCYTOSIS [None]
  - MULTIPLE SCLEROSIS RELAPSE [None]
  - PRURITUS [None]
